FAERS Safety Report 9349393 (Version 2)
Quarter: 2013Q2

REPORT INFORMATION
  Report Type: Spontaneous
  Country: JP (occurrence: JP)
  Receive Date: 20130614
  Receipt Date: 20130627
  Transmission Date: 20140414
  Serious: Yes (Hospitalization)
  Sender: FDA-Public Use
  Company Number: JP-B.I. PHARMACEUTICALS,INC./RIDGEFIELD-2013-BI-16812NB

PATIENT
  Age: 80 Year
  Sex: Male
  Weight: 67 kg

DRUGS (7)
  1. TRAZENTA [Suspect]
     Indication: DIABETES MELLITUS
     Dosage: 5 MG
     Route: 048
     Dates: start: 20130607, end: 20130607
  2. EUGLUCON [Concomitant]
     Indication: DIABETES MELLITUS
     Dosage: 5 MG
     Route: 048
     Dates: start: 20111128
  3. OPAPROSMON [Concomitant]
     Indication: LUMBAR SPINAL STENOSIS
     Dosage: 30 MCG
     Route: 048
     Dates: start: 20070111
  4. HERBESSER [Concomitant]
     Indication: HYPERTENSION
     Dosage: 90 MG
     Route: 048
     Dates: start: 20070111
  5. AMLODIPINE [Concomitant]
     Indication: HYPERTENSION
     Dosage: 5 MG
     Route: 048
     Dates: start: 20110801
  6. BASEN [Concomitant]
     Indication: DIABETES MELLITUS
     Dosage: 0.6 MG
     Route: 048
     Dates: start: 20080222
  7. NU-LOTAN [Concomitant]
     Indication: HYPERTENSION
     Dosage: 50 MG
     Route: 048
     Dates: start: 20070111

REACTIONS (1)
  - Hepatic function abnormal [Recovered/Resolved]
